FAERS Safety Report 8905964 (Version 1)
Quarter: 2012Q4

REPORT INFORMATION
  Report Type: 
  Country: US (occurrence: US)
  Receive Date: 20121111
  Receipt Date: 20121111
  Transmission Date: 20130627
  Serious: No
  Sender: FDA-Public Use
  Company Number: US-009507513-1211USA003448

PATIENT
  Age: 28 Year
  Sex: Male

DRUGS (1)
  1. SAPHRIS [Suspect]
     Indication: PSYCHOTIC DISORDER
     Dosage: 5 mg, bid
     Route: 060

REACTIONS (1)
  - Diarrhoea [Recovered/Resolved]
